FAERS Safety Report 8500768-9 (Version None)
Quarter: 2012Q3

REPORT INFORMATION
  Report Type: 
  Country: None (occurrence: None)
  Receive Date: 20120710
  Receipt Date: 20120627
  Transmission Date: 20120928
  Serious: No
  Sender: FDA-Public Use
  Company Number: US-ASTRAZENECA-2012SE43863

PATIENT
  Age: 48 Year
  Sex: Female
  Weight: 54.4 kg

DRUGS (12)
  1. SEROQUEL [Suspect]
     Route: 048
  2. SEROQUEL [Suspect]
     Route: 048
  3. SEROQUEL [Suspect]
     Route: 048
  4. SEROQUEL [Suspect]
     Indication: SLEEP DISORDER
     Route: 048
  5. CELEXA [Concomitant]
  6. KLONOPIN [Concomitant]
  7. SEROQUEL [Suspect]
     Indication: OBSESSIVE-COMPULSIVE DISORDER
     Route: 048
  8. SEROQUEL [Suspect]
     Route: 048
  9. TOPAMAX [Concomitant]
  10. SEROQUEL [Suspect]
     Route: 048
  11. SEROQUEL [Suspect]
     Indication: ANXIETY
     Route: 048
  12. SEROQUEL [Suspect]
     Route: 048

REACTIONS (5)
  - CONSTIPATION [None]
  - SEDATION [None]
  - DRUG INEFFECTIVE [None]
  - WEIGHT INCREASED [None]
  - OFF LABEL USE [None]
